FAERS Safety Report 25771112 (Version 2)
Quarter: 2025Q4

REPORT INFORMATION
  Report Type: Report from Study
  Country: JP (occurrence: JP)
  Receive Date: 20250908
  Receipt Date: 20251004
  Transmission Date: 20260117
  Serious: Yes (Other)
  Sender: ABBVIE
  Company Number: JP-TAKEDA-2022TJP045802

PATIENT
  Age: 75 Year
  Sex: Male

DRUGS (1)
  1. LEUPROLIDE ACETATE [Suspect]
     Active Substance: LEUPROLIDE ACETATE
     Indication: Bulbospinal muscular atrophy congenital
     Dosage: FORM STRENGTH: 11.25 MILLIGRAM, Q3MONTHS
     Route: 058
     Dates: start: 20210407, end: 20230927

REACTIONS (7)
  - Diabetes mellitus [Recovered/Resolved]
  - Insomnia [Recovered/Resolved]
  - Injection site ulcer [Recovered/Resolved]
  - Injection site induration [Recovered/Resolved]
  - Injection site ulcer [Recovered/Resolved]
  - Injection site induration [Recovered/Resolved]
  - Myalgia [Recovered/Resolved]

NARRATIVE: CASE EVENT DATE: 20210602
